FAERS Safety Report 17205258 (Version 6)
Quarter: 2021Q3

REPORT INFORMATION
  Report Type: Report from Study
  Country: US (occurrence: US)
  Receive Date: 20191227
  Receipt Date: 20210929
  Transmission Date: 20211014
  Serious: Yes (Hospitalization)
  Sender: FDA-Public Use
  Company Number: NVSC2019US080124

PATIENT
  Sex: Male
  Weight: 70 kg

DRUGS (6)
  1. OPSUMIT [Concomitant]
     Active Substance: MACITENTAN
     Indication: PRODUCT USED FOR UNKNOWN INDICATION
     Dosage: UNK
     Route: 065
  2. AMLODIPINE [Concomitant]
     Active Substance: AMLODIPINE BESYLATE
     Indication: PRODUCT USED FOR UNKNOWN INDICATION
     Dosage: UNK
     Route: 065
  3. TREPROSTINIL. [Suspect]
     Active Substance: TREPROSTINIL
     Dosage: 62 NG/KG/MIN, CONT
     Route: 042
     Dates: start: 20190731
  4. SILDENAFIL CITRATE. [Concomitant]
     Active Substance: SILDENAFIL CITRATE
     Indication: PRODUCT USED FOR UNKNOWN INDICATION
     Dosage: UNK
     Route: 065
  5. TREPROSTINIL. [Suspect]
     Active Substance: TREPROSTINIL
     Indication: PULMONARY ARTERIAL HYPERTENSION
     Dosage: 60 NG/KG/MIN, CONT
     Route: 042
     Dates: start: 20190731
  6. TREPROSTINIL. [Suspect]
     Active Substance: TREPROSTINIL
     Dosage: 62 NG/KG/MIN, CONT
     Route: 042
     Dates: start: 20190731

REACTIONS (10)
  - Sinus pain [Unknown]
  - Breath sounds abnormal [Unknown]
  - Productive cough [Unknown]
  - Weight decreased [Unknown]
  - Dizziness [Unknown]
  - Dyspnoea exertional [Unknown]
  - Swelling [Unknown]
  - Diarrhoea [Unknown]
  - Rash [Unknown]
  - Epistaxis [Unknown]
